FAERS Safety Report 18125886 (Version 3)
Quarter: 2021Q1

REPORT INFORMATION
  Report Type: Spontaneous
  Country: US (occurrence: US)
  Receive Date: 20200807
  Receipt Date: 20210302
  Transmission Date: 20210419
  Serious: Yes (Hospitalization, Other)
  Sender: FDA-Public Use
  Company Number: US-ASTRAZENECA-2020SE97525

PATIENT
  Age: 51 Year
  Sex: Female
  Weight: 86.2 kg

DRUGS (75)
  1. NEXIUM [Suspect]
     Active Substance: ESOMEPRAZOLE MAGNESIUM
     Indication: GASTROOESOPHAGEAL REFLUX DISEASE
     Route: 048
     Dates: start: 2001, end: 2018
  2. NEXIUM 24HR [Suspect]
     Active Substance: ESOMEPRAZOLE MAGNESIUM
     Indication: GASTROOESOPHAGEAL REFLUX DISEASE
     Route: 048
     Dates: start: 2014, end: 2018
  3. ZEGERID [Suspect]
     Active Substance: OMEPRAZOLE\SODIUM BICARBONATE
     Indication: GASTROOESOPHAGEAL REFLUX DISEASE
     Route: 065
     Dates: start: 20141127
  4. SYNTHROID [Concomitant]
     Active Substance: LEVOTHYROXINE SODIUM
  5. AMLODIPIN?BENAZEPRIL [Concomitant]
  6. BELSOMRA [Concomitant]
     Active Substance: SUVOREXANT
  7. CARISOPRODOL. [Concomitant]
     Active Substance: CARISOPRODOL
  8. LINZESS [Concomitant]
     Active Substance: LINACLOTIDE
  9. AMITRIPTYLINE [Concomitant]
     Active Substance: AMITRIPTYLINE
  10. KLOR?CON [Concomitant]
     Active Substance: POTASSIUM CHLORIDE
  11. FLUTICASONE. [Concomitant]
     Active Substance: FLUTICASONE
  12. TAMIFLU [Concomitant]
     Active Substance: OSELTAMIVIR PHOSPHATE
  13. OMEPRAZOLE. [Suspect]
     Active Substance: OMEPRAZOLE
     Indication: GASTROOESOPHAGEAL REFLUX DISEASE
     Route: 065
     Dates: start: 20161208
  14. OMEPRAZOLE. [Suspect]
     Active Substance: OMEPRAZOLE
     Indication: GASTROOESOPHAGEAL REFLUX DISEASE
     Route: 065
     Dates: start: 20170511
  15. PREVACID [Suspect]
     Active Substance: LANSOPRAZOLE
     Indication: GASTROOESOPHAGEAL REFLUX DISEASE
     Route: 065
     Dates: start: 2006, end: 2018
  16. ZEGERID [Suspect]
     Active Substance: OMEPRAZOLE\SODIUM BICARBONATE
     Indication: GASTROOESOPHAGEAL REFLUX DISEASE
     Route: 065
     Dates: start: 20140417
  17. AMOXICILLIN. [Concomitant]
     Active Substance: AMOXICILLIN
     Indication: INFECTION
     Dates: start: 20130923, end: 20150925
  18. IBUPROFEN. [Concomitant]
     Active Substance: IBUPROFEN
     Indication: PAIN
     Dates: start: 2015, end: 2017
  19. NYSTATIN. [Concomitant]
     Active Substance: NYSTATIN
  20. TRAMADOL. [Concomitant]
     Active Substance: TRAMADOL
  21. VITAMIN D3 [Concomitant]
     Active Substance: CHOLECALCIFEROL
  22. SINGULAIR [Concomitant]
     Active Substance: MONTELUKAST SODIUM
  23. XENICAL [Concomitant]
     Active Substance: ORLISTAT
  24. LEVOTHYROXINE. [Concomitant]
     Active Substance: LEVOTHYROXINE
  25. FERROUS SULFATE. [Concomitant]
     Active Substance: FERROUS SULFATE
  26. PROAIR HFA [Concomitant]
     Active Substance: ALBUTEROL SULFATE
  27. OMEPRAZOLE. [Suspect]
     Active Substance: OMEPRAZOLE
     Indication: GASTROOESOPHAGEAL REFLUX DISEASE
     Route: 065
     Dates: start: 20121001
  28. PREVACID [Suspect]
     Active Substance: LANSOPRAZOLE
     Indication: GASTROOESOPHAGEAL REFLUX DISEASE
     Route: 065
     Dates: start: 200002, end: 201802
  29. ZEGERID [Suspect]
     Active Substance: OMEPRAZOLE\SODIUM BICARBONATE
     Indication: GASTROOESOPHAGEAL REFLUX DISEASE
     Route: 065
     Dates: start: 20141229
  30. POLYETHYLENE GLYCOL [Concomitant]
     Active Substance: POLYETHYLENE GLYCOLS
  31. FLUOXETINE [Concomitant]
     Active Substance: FLUOXETINE HYDROCHLORIDE
  32. NEXIUM 24HR [Suspect]
     Active Substance: ESOMEPRAZOLE MAGNESIUM
     Indication: GASTROOESOPHAGEAL REFLUX DISEASE
     Route: 048
     Dates: start: 200002, end: 201802
  33. ZANTAC [Concomitant]
     Active Substance: RANITIDINE HYDROCHLORIDE
  34. PAROXETIN [Concomitant]
     Active Substance: PAROXETINE HYDROCHLORIDE
  35. BUSPIRONE [Concomitant]
     Active Substance: BUSPIRONE HYDROCHLORIDE
  36. ONDANSETRON [Concomitant]
     Active Substance: ONDANSETRON
  37. NAPROXEN. [Concomitant]
     Active Substance: NAPROXEN
  38. MEDROXYPROGESTERONE [Concomitant]
     Active Substance: MEDROXYPROGESTERONE
  39. ALPRAZOLAM. [Concomitant]
     Active Substance: ALPRAZOLAM
  40. ASTEPRO [Concomitant]
     Active Substance: AZELASTINE HYDROCHLORIDE
  41. OMEPRAZOLE. [Suspect]
     Active Substance: OMEPRAZOLE
     Indication: GASTROOESOPHAGEAL REFLUX DISEASE
     Route: 065
     Dates: start: 2011
  42. OMEPRAZOLE. [Suspect]
     Active Substance: OMEPRAZOLE
     Indication: GASTROOESOPHAGEAL REFLUX DISEASE
     Route: 065
     Dates: start: 20170206
  43. PANTOPRAZOLE [Suspect]
     Active Substance: PANTOPRAZOLE
     Indication: GASTROOESOPHAGEAL REFLUX DISEASE
     Route: 065
     Dates: end: 2019
  44. FENTANYL. [Concomitant]
     Active Substance: FENTANYL
  45. MELOXICAM. [Concomitant]
     Active Substance: MELOXICAM
  46. AZITHROMYCIN ANHYDROUS. [Concomitant]
     Active Substance: AZITHROMYCIN ANHYDROUS
  47. DICYCLOMINE [Concomitant]
     Active Substance: DICYCLOMINE HYDROCHLORIDE
  48. METOCLOPRAMIDE. [Concomitant]
     Active Substance: METOCLOPRAMIDE
  49. CELEBREX [Concomitant]
     Active Substance: CELECOXIB
  50. OMEPRAZOLE. [Suspect]
     Active Substance: OMEPRAZOLE
     Indication: GASTROOESOPHAGEAL REFLUX DISEASE
     Route: 065
     Dates: start: 20170120
  51. ZEGERID [Suspect]
     Active Substance: OMEPRAZOLE\SODIUM BICARBONATE
     Indication: GASTROOESOPHAGEAL REFLUX DISEASE
     Route: 065
     Dates: start: 20040307
  52. PEPCID [Concomitant]
     Active Substance: FAMOTIDINE
  53. METFORMIN [Concomitant]
     Active Substance: METFORMIN HYDROCHLORIDE
  54. MOMETASONE [Concomitant]
     Active Substance: MOMETASONE
  55. BENZTROPINE. [Concomitant]
     Active Substance: BENZTROPINE
  56. TIZANIDINE. [Concomitant]
     Active Substance: TIZANIDINE
  57. BUTALB?ACETAMIDE [Concomitant]
  58. NEXIUM [Suspect]
     Active Substance: ESOMEPRAZOLE MAGNESIUM
     Indication: GASTROOESOPHAGEAL REFLUX DISEASE
     Route: 048
     Dates: start: 200002, end: 201802
  59. PRILOSEC OTC [Suspect]
     Active Substance: OMEPRAZOLE MAGNESIUM
     Indication: GASTROOESOPHAGEAL REFLUX DISEASE
     Route: 048
     Dates: start: 200002, end: 201802
  60. PANTOPRAZOLE [Suspect]
     Active Substance: PANTOPRAZOLE
     Indication: GASTROOESOPHAGEAL REFLUX DISEASE
     Route: 065
     Dates: start: 20160713
  61. GABAPENTIN. [Concomitant]
     Active Substance: GABAPENTIN
     Indication: PAIN
     Dates: start: 20150401, end: 20160531
  62. CLONAZEPAM. [Concomitant]
     Active Substance: CLONAZEPAM
  63. ZOLPIDEM [Concomitant]
     Active Substance: ZOLPIDEM TARTRATE
  64. AZELASTINE. [Concomitant]
     Active Substance: AZELASTINE HYDROCHLORIDE
  65. BUPROPION. [Concomitant]
     Active Substance: BUPROPION
  66. OMEPRAZOLE. [Suspect]
     Active Substance: OMEPRAZOLE
     Indication: GASTROOESOPHAGEAL REFLUX DISEASE
     Route: 065
     Dates: start: 20161115
  67. PRILOSEC OTC [Suspect]
     Active Substance: OMEPRAZOLE MAGNESIUM
     Indication: GASTROOESOPHAGEAL REFLUX DISEASE
     Route: 048
     Dates: start: 2004, end: 2018
  68. ARIPRAZOLE [Concomitant]
     Active Substance: ARIPIPRAZOLE
  69. HYDROCHLOROTHIAZIDE. [Concomitant]
     Active Substance: HYDROCHLOROTHIAZIDE
  70. TOPIRAMATE. [Concomitant]
     Active Substance: TOPIRAMATE
  71. MONTELUKAST [Concomitant]
     Active Substance: MONTELUKAST SODIUM
  72. CYCLOBENZAPRINE. [Concomitant]
     Active Substance: CYCLOBENZAPRINE
  73. HYDROXYZINE [Concomitant]
     Active Substance: HYDROXYZINE HYDROCHLORIDE
  74. VENTOLIN [Concomitant]
     Active Substance: ALBUTEROL SULFATE
  75. VOLTAREN [Concomitant]
     Active Substance: DICLOFENAC SODIUM

REACTIONS (2)
  - Gastrooesophageal reflux disease [Not Recovered/Not Resolved]
  - Acute kidney injury [Not Recovered/Not Resolved]

NARRATIVE: CASE EVENT DATE: 2017
